FAERS Safety Report 12503133 (Version 2)
Quarter: 2016Q3

REPORT INFORMATION
  Report Type: Spontaneous
  Country: FR (occurrence: FR)
  Receive Date: 20160628
  Receipt Date: 20160712
  Transmission Date: 20161109
  Serious: Yes (Death, Life-Threatening, Hospitalization, Other)
  Sender: FDA-Public Use
  Company Number: FR-ZYDUS-011375

PATIENT
  Age: 68 Year
  Sex: Female

DRUGS (1)
  1. AMLODIPINE [Suspect]
     Active Substance: AMLODIPINE BESYLATE
     Indication: PRODUCT USED FOR UNKNOWN INDICATION
     Dosage: MASSIVE INGESTION OF 0.9 GRAMS OF AMLODIPINE.
     Route: 048

REACTIONS (5)
  - Organ failure [Unknown]
  - Toxicity to various agents [Fatal]
  - Overdose [Unknown]
  - Shock [Unknown]
  - Hypotension [Unknown]
